FAERS Safety Report 18563398 (Version 3)
Quarter: 2021Q1

REPORT INFORMATION
  Report Type: Report from Study
  Country: None (occurrence: RO)
  Receive Date: 20201201
  Receipt Date: 20210107
  Transmission Date: 20210419
  Serious: Yes (Hospitalization)
  Sender: FDA-Public Use
  Company Number: RO-ABBVIE-20K-135-3669428-00

PATIENT
  Age: 77 Year
  Sex: Male

DRUGS (2)
  1. DUODOPA [Suspect]
     Active Substance: CARBIDOPA\LEVODOPA
     Indication: PARKINSON^S DISEASE
     Dosage: DM 7.00 DC 3.50 ED 1.70 NRED 2; DMN=0.00 DCN 2.00 EDN 2.00 NREDN 0
     Route: 050
     Dates: start: 20150804, end: 20201207
  2. DUODOPA [Suspect]
     Active Substance: CARBIDOPA\LEVODOPA

REACTIONS (4)
  - Mixed dementia [Not Recovered/Not Resolved]
  - Device issue [Unknown]
  - Cognitive disorder [Not Recovered/Not Resolved]
  - Stoma complication [Unknown]

NARRATIVE: CASE EVENT DATE: 202011
